FAERS Safety Report 4535971-6 (Version None)
Quarter: 2004Q4

REPORT INFORMATION
  Report Type: 
  Country: None (occurrence: None)
  Receive Date: 20041222
  Receipt Date: 20041222
  Transmission Date: 20050328
  Serious: No
  Sender: FDA-Public Use
  Company Number: None

PATIENT

DRUGS (1)
  1. BEXTRA [Suspect]

REACTIONS (5)
  - ACUTE MYOCARDIAL INFARCTION [None]
  - CARDIAC ARREST [None]
  - CORONARY ARTERY DISEASE [None]
  - EMOTIONAL DISORDER [None]
  - IMPAIRED WORK ABILITY [None]
